FAERS Safety Report 15477999 (Version 1)
Quarter: 2018Q4

REPORT INFORMATION
  Report Type: Spontaneous
  Country: US (occurrence: US)
  Receive Date: 20181002
  Receipt Date: 20181002
  Transmission Date: 20190205
  Serious: Yes (Other)
  Sender: FDA-Public Use
  Company Number: None

PATIENT
  Sex: Female

DRUGS (12)
  1. IBRANCE [Suspect]
     Active Substance: PALBOCICLIB
     Indication: BREAST CANCER
     Dosage: ?          OTHER FREQUENCY:DAILY FOR 21 DAYS;?
     Route: 048
     Dates: start: 20170825
  2. VITAMIN D [Concomitant]
     Active Substance: CHOLECALCIFEROL
  3. METRONIDAZOL [Concomitant]
     Active Substance: METRONIDAZOLE
  4. DILTIAZEM. [Concomitant]
     Active Substance: DILTIAZEM
  5. XGEVA [Concomitant]
     Active Substance: DENOSUMAB
  6. OXYCODONE [Concomitant]
     Active Substance: OXYCODONE
  7. FASLODEX [Concomitant]
     Active Substance: FULVESTRANT
  8. DEXAMETHASON [Concomitant]
     Active Substance: DEXAMETHASONE
  9. ELIQUIS [Concomitant]
     Active Substance: APIXABAN
  10. LEVETIRACETA [Concomitant]
  11. ESCITALOPRAM [Concomitant]
     Active Substance: ESCITALOPRAM OXALATE
  12. VITAMIN D3 [Concomitant]
     Active Substance: CHOLECALCIFEROL

REACTIONS (1)
  - Brain neoplasm [None]
